FAERS Safety Report 7937398-3 (Version None)
Quarter: 2011Q4

REPORT INFORMATION
  Report Type: 
  Country: None (occurrence: None)
  Receive Date: 20111123
  Receipt Date: 20111114
  Transmission Date: 20120403
  Serious: Yes (Other)
  Sender: FDA-Public Use
  Company Number: US-UCBSA-044649

PATIENT
  Age: 49 Year
  Sex: Female
  Weight: 64.86 kg

DRUGS (7)
  1. CIMZIA [Suspect]
     Indication: CROHN'S DISEASE
     Dosage: ONLY ONE DOSE
     Route: 058
     Dates: start: 20111026, end: 20111026
  2. SAVELLA [Concomitant]
  3. INDERAL [Concomitant]
  4. QUESTRAN [Concomitant]
  5. SYNTHROID [Concomitant]
  6. BACLOFEN [Concomitant]
  7. ZOFRAN [Concomitant]

REACTIONS (8)
  - HYPOAESTHESIA [None]
  - DYSPNOEA [None]
  - THROAT TIGHTNESS [None]
  - SENSATION OF FOREIGN BODY [None]
  - FLUSHING [None]
  - ANXIETY [None]
  - CONVERSION DISORDER [None]
  - DIZZINESS [None]
